FAERS Safety Report 15489187 (Version 1)
Quarter: 2018Q4

REPORT INFORMATION
  Report Type: Spontaneous
  Country: US (occurrence: US)
  Receive Date: 20181011
  Receipt Date: 20181011
  Transmission Date: 20190205
  Serious: Yes (Other)
  Sender: FDA-Public Use
  Company Number: None

PATIENT
  Age: 65 Year
  Sex: Female
  Weight: 119.02 kg

DRUGS (15)
  1. LISINOPRIL. [Concomitant]
     Active Substance: LISINOPRIL
  2. IBRANCE [Suspect]
     Active Substance: PALBOCICLIB
     Indication: BREAST CANCER
     Route: 048
     Dates: start: 20170502, end: 20181011
  3. ATORVASTATIN [Concomitant]
     Active Substance: ATORVASTATIN
  4. FLAXSEED [Concomitant]
     Active Substance: FLAX SEED
  5. REPAGLINIDE. [Concomitant]
     Active Substance: REPAGLINIDE
  6. ATENOLOL. [Concomitant]
     Active Substance: ATENOLOL
  7. CALTRATE [Concomitant]
     Active Substance: CALCIUM CARBONATE
  8. DULOXETINE. [Concomitant]
     Active Substance: DULOXETINE
  9. XGEVA [Concomitant]
     Active Substance: DENOSUMAB
  10. DOCUSATE [Concomitant]
     Active Substance: DOCUSATE
  11. IBUPROFEN. [Concomitant]
     Active Substance: IBUPROFEN
  12. CLARITIN [Concomitant]
     Active Substance: LORATADINE
  13. LETROZOLE. [Suspect]
     Active Substance: LETROZOLE
     Indication: BREAST CANCER
     Route: 048
     Dates: start: 20170502, end: 20181011
  14. OXYCODONE AND ACETAMINOPHEN [Concomitant]
     Active Substance: ACETAMINOPHEN\OXYCODONE HYDROCHLORIDE
  15. TRULICITY [Concomitant]
     Active Substance: DULAGLUTIDE

REACTIONS (1)
  - Disease progression [None]
